FAERS Safety Report 23298855 (Version 1)
Quarter: 2023Q4

REPORT INFORMATION
  Report Type: Spontaneous
  Country: FI (occurrence: FI)
  Receive Date: 20231215
  Receipt Date: 20231215
  Transmission Date: 20240110
  Serious: Yes (Other)
  Sender: FDA-Public Use
  Company Number: FI-ELI_LILLY_AND_COMPANY-FI202312002917

PATIENT
  Age: 64 Year
  Sex: Male

DRUGS (3)
  1. CIALIS [Suspect]
     Active Substance: TADALAFIL
     Indication: Product used for unknown indication
     Dosage: UNK UNK, PRN (MAX 20 MG IN A WEEK)
     Route: 065
  2. CORTISONE [Concomitant]
     Active Substance: CORTISONE
     Indication: Gout
  3. FEBUXOSTAT [Concomitant]
     Active Substance: FEBUXOSTAT
     Indication: Gout

REACTIONS (2)
  - Pulmonary embolism [Unknown]
  - Inappropriate schedule of product administration [Unknown]
